FAERS Safety Report 4521670-3 (Version None)
Quarter: 2004Q4

REPORT INFORMATION
  Report Type: 
  Country: None (occurrence: None)
  Receive Date: 20041206
  Receipt Date: 20041124
  Transmission Date: 20050328
  Serious: Yes (Hospitalization)
  Sender: FDA-Public Use
  Company Number: ZONI002059

PATIENT
  Age: 13 Year
  Sex: Female

DRUGS (3)
  1. EXCEGRAN (ZONISAMIDE) [Suspect]
     Indication: LENNOX-GASTAUT SYNDROME
     Dosage: 200 MG, 1 IN 1 D, ORAL
     Route: 048
     Dates: start: 20030210, end: 20030218
  2. LAMOTRIGINE [Concomitant]
  3. NITRAZEPAM [Concomitant]

REACTIONS (1)
  - STEVENS-JOHNSON SYNDROME [None]
